FAERS Safety Report 4445181-9 (Version None)
Quarter: 2004Q3

REPORT INFORMATION
  Report Type: 
  Country: None (occurrence: None)
  Receive Date: 20040819
  Receipt Date: 20040331
  Transmission Date: 20050211
  Serious: Yes (Other)
  Sender: FDA-Public Use
  Company Number: 2004011799

PATIENT
  Age: 75 Year
  Sex: Female
  Weight: 45.3597 kg

DRUGS (9)
  1. NORVASC [Suspect]
     Indication: HYPERTENSION
     Dosage: 5 MG (DAILY), ORAL
     Route: 048
     Dates: start: 20020101, end: 20040101
  2. ATENOLOL [Concomitant]
  3. RALOXIFENE HCL [Concomitant]
  4. DIAZEPAM [Concomitant]
  5. ACETAMINOPHEN [Concomitant]
  6. DOCUSATE SODIUM (DOCUSATE SODIUM) [Concomitant]
  7. MULTIVITAMIN [Concomitant]
  8. CALCIUM CARBONATE (CALCIUM CARBONATE) [Concomitant]
  9. ERGOCALCIFEROL (ERGOCALCIFEROL) [Concomitant]

REACTIONS (2)
  - GINGIVAL HYPERPLASIA [None]
  - HYPERTENSION [None]
